FAERS Safety Report 9484621 (Version 1)
Quarter: 2013Q3

REPORT INFORMATION
  Report Type: Spontaneous
  Country: JP (occurrence: JP)
  Receive Date: 20130828
  Receipt Date: 20130828
  Transmission Date: 20140515
  Serious: Yes (Hospitalization)
  Sender: FDA-Public Use
  Company Number: JP-ABBOTT-13P-087-1138629-00

PATIENT
  Age: 45 Year
  Sex: Female

DRUGS (3)
  1. HUMIRA [Suspect]
     Indication: DISEASE PROGRESSION
     Route: 058
     Dates: start: 20110610
  2. HUMIRA [Suspect]
     Indication: PROPHYLAXIS
  3. PARENTERNAL NUTRITION [Concomitant]
     Indication: PRODUCT USED FOR UNKNOWN INDICATION

REACTIONS (3)
  - Female genital tract fistula [Not Recovered/Not Resolved]
  - Tumour fistulisation [Not Recovered/Not Resolved]
  - Neoplasm malignant [Not Recovered/Not Resolved]
